FAERS Safety Report 5911251-9 (Version None)
Quarter: 2008Q4

REPORT INFORMATION
  Report Type: 
  Country: None (occurrence: None)
  Receive Date: 20081007
  Receipt Date: 20080925
  Transmission Date: 20090506
  Serious: Yes (Other)
  Sender: FDA-Public Use
  Company Number: JP-ASTRAZENECA-2008AP07516

PATIENT
  Age: 3 Year
  Sex: Male
  Weight: 14 kg

DRUGS (3)
  1. XYLOCAINE [Suspect]
     Indication: NERVE BLOCK
     Route: 053
  2. ANAPEINE INJECTION 7.5MG/ML [Suspect]
     Indication: NERVE BLOCK
     Route: 053
  3. THIOPENTAL SODIUM [Concomitant]
     Indication: GENERAL ANAESTHESIA
     Dosage: DOSE UNKNOWN
     Route: 042

REACTIONS (1)
  - DRUG TOXICITY [None]
